FAERS Safety Report 7332738-0 (Version None)
Quarter: 2011Q1

REPORT INFORMATION
  Report Type: 
  Country: None (occurrence: None)
  Receive Date: 20110304
  Receipt Date: 20100917
  Transmission Date: 20110831
  Serious: No
  Sender: FDA-Public Use
  Company Number: US-TYCO HEALTHCARE/MALLINCKRODT-T201002040

PATIENT
  Age: 43 Year
  Sex: Female

DRUGS (2)
  1. RESTORIL [Suspect]
     Indication: INSOMNIA
     Dosage: 30 MG AT NIGHT
     Route: 048
     Dates: start: 20080101, end: 20090801
  2. RESTORIL [Suspect]
     Dosage: 30 MG AT NIGHT
     Route: 048
     Dates: start: 20091201

REACTIONS (1)
  - ALOPECIA [None]
